FAERS Safety Report 5356094-2 (Version None)
Quarter: 2007Q2

REPORT INFORMATION
  Report Type: 
  Country: None (occurrence: None)
  Receive Date: 20070613
  Receipt Date: 20070531
  Transmission Date: 20071010
  Serious: Yes (Other)
  Sender: FDA-Public Use
  Company Number: CA-ELI_LILLY_AND_COMPANY-CA200702004691

PATIENT
  Age: 14 Year
  Sex: Male
  Weight: 54 kg

DRUGS (5)
  1. STRATTERA [Suspect]
     Indication: ATTENTION DEFICIT/HYPERACTIVITY DISORDER
     Dosage: 60 MG, UNK
     Route: 048
     Dates: start: 20061214, end: 20070110
  2. STRATTERA [Suspect]
     Dosage: 40 MG, UNK
     Route: 048
     Dates: start: 20070111, end: 20070124
  3. STRATTERA [Suspect]
     Dosage: 60 MG, UNK
     Route: 048
     Dates: start: 20070125, end: 20070207
  4. STRATTERA [Suspect]
     Dosage: 40 MG, UNK
     Route: 048
     Dates: start: 20070208
  5. DEXEDRINE [Concomitant]
     Dosage: 10 MG, EACH MORNING

REACTIONS (3)
  - EDUCATIONAL PROBLEM [None]
  - FATIGUE [None]
  - IMPULSIVE BEHAVIOUR [None]
